FAERS Safety Report 18457878 (Version 1)
Quarter: 2020Q4

REPORT INFORMATION
  Report Type: Spontaneous
  Country: IT (occurrence: IT)
  Receive Date: 20201103
  Receipt Date: 20201103
  Transmission Date: 20210114
  Serious: Yes (Other)
  Sender: FDA-Public Use
  Company Number: NVSC2020IT287506

PATIENT
  Age: 43 Year
  Sex: Female

DRUGS (3)
  1. ANAFRANIL [Suspect]
     Active Substance: CLOMIPRAMINE HYDROCHLORIDE
     Indication: DRUG ABUSE
     Dosage: 75 MG, TOTAL
     Route: 048
     Dates: start: 20200316, end: 20200316
  2. TRITTICO [Suspect]
     Active Substance: TRAZODONE HYDROCHLORIDE
     Indication: DRUG ABUSE
     Dosage: 15 DF, TOTAL
     Route: 048
  3. QUETIAPINA ACCORD [Suspect]
     Active Substance: QUETIAPINE
     Indication: DRUG ABUSE
     Dosage: 15 DF, TOTAL
     Route: 048
     Dates: start: 20200316, end: 20200316

REACTIONS (3)
  - Drug abuse [Unknown]
  - Sopor [Unknown]
  - Poisoning [Unknown]

NARRATIVE: CASE EVENT DATE: 20200316
